FAERS Safety Report 4690240-9 (Version None)
Quarter: 2005Q2

REPORT INFORMATION
  Report Type: 
  Country: None (occurrence: None)
  Receive Date: 20050615
  Receipt Date: 20050211
  Transmission Date: 20051028
  Serious: Yes (Hospitalization)
  Sender: FDA-Public Use
  Company Number: US-MERCK-0502USA01532

PATIENT
  Age: 81 Year
  Sex: Female

DRUGS (2)
  1. ZOCOR [Suspect]
     Route: 048
     Dates: start: 20050201
  2. AVAPRO [Concomitant]
     Route: 065

REACTIONS (1)
  - RHABDOMYOLYSIS [None]
